FAERS Safety Report 6610964-3 (Version None)
Quarter: 2010Q1

REPORT INFORMATION
  Report Type: 
  Country: None (occurrence: None)
  Receive Date: 20100222
  Receipt Date: 20100201
  Transmission Date: 20100710
  Serious: Yes (Other)
  Sender: FDA-Public Use
  Company Number: 2010SP003844

PATIENT
  Age: 68 Year
  Sex: Male
  Weight: 60 kg

DRUGS (12)
  1. REMERON [Suspect]
     Indication: DEPRESSION
     Dosage: 15 MG;QD;PO ; 30 MG;QD;PO ; 15 MG;QD;PO
     Route: 048
     Dates: start: 20090909, end: 20091006
  2. REMERON [Suspect]
     Indication: DEPRESSION
     Dosage: 15 MG;QD;PO ; 30 MG;QD;PO ; 15 MG;QD;PO
     Route: 048
     Dates: start: 20091007, end: 20100112
  3. REMERON [Suspect]
     Indication: DEPRESSION
     Dosage: 15 MG;QD;PO ; 30 MG;QD;PO ; 15 MG;QD;PO
     Route: 048
     Dates: start: 20100113
  4. PAXIL [Concomitant]
  5. LIPITOR [Concomitant]
  6. EPADEL S [Concomitant]
  7. PROCYLIN [Concomitant]
  8. ANAPLAG [Concomitant]
  9. AMARYL [Concomitant]
  10. GLUCOBAY [Concomitant]
  11. JANUVIA (SITAGLIPTIN PHOSPHATE HYDRATE) [Concomitant]
  12. SILECE [Concomitant]

REACTIONS (3)
  - AGGRESSION [None]
  - AGITATION [None]
  - IRRITABILITY [None]
